FAERS Safety Report 7217137-4 (Version None)
Quarter: 2011Q1

REPORT INFORMATION
  Report Type: 
  Country: None (occurrence: None)
  Receive Date: 20110110
  Receipt Date: 20110106
  Transmission Date: 20110831
  Serious: Yes (Hospitalization)
  Sender: FDA-Public Use
  Company Number: FR-BRISTOL-MYERS SQUIBB COMPANY-15129901

PATIENT
  Age: 73 Year
  Sex: Male

DRUGS (21)
  1. CITALOPRAM HYDROBROMIDE [Suspect]
     Indication: DEPRESSION
     Route: 048
     Dates: start: 20100410, end: 20100413
  2. PREVISCAN [Suspect]
     Indication: ATRIAL FIBRILLATION
     Dosage: INTERR ON 13APR2010,1YR
     Route: 048
     Dates: start: 20090101
  3. LIPANTHYL [Suspect]
     Indication: DYSLIPIDAEMIA
     Dosage: INTER ON 13APR2010,DURATION:1YR
     Dates: start: 20090101
  4. CREON [Concomitant]
     Dates: start: 20100101, end: 20100414
  5. DOLIPRANE [Concomitant]
     Dates: start: 20100407, end: 20100409
  6. MYSOLINE [Suspect]
     Indication: ESSENTIAL TREMOR
     Dosage: 187.5 MG
     Route: 048
     Dates: start: 20090101, end: 20100413
  7. LOXEN [Suspect]
     Indication: HYPERTENSION
     Dosage: INTERR ON 13APR2010,2DAYS
     Route: 048
     Dates: start: 20100411
  8. LASIX [Concomitant]
     Dates: start: 20100101
  9. GLUCOPHAGE [Suspect]
     Indication: DIABETES MELLITUS
     Dosage: INTERR ON 07APR2010
     Route: 048
     Dates: start: 20090101
  10. TOPALGIC LP [Suspect]
     Indication: BACK PAIN
     Dosage: INTER ON 14APR2010
     Route: 048
     Dates: start: 20100407
  11. THIOCOLCHICOSIDE [Suspect]
     Indication: BACK PAIN
     Dosage: INTERR ON 14APR2010
     Dates: start: 20100407
  12. DAFALGAN CODEINE TABS [Suspect]
     Indication: BACK PAIN
     Dosage: INTERR ON 13APR2010,4DAYS
     Dates: start: 20100409
  13. IMOVANE [Concomitant]
     Dates: start: 20100101
  14. MOLSIDOMINE [Concomitant]
  15. RAMIPRIL [Concomitant]
     Dates: start: 20100101
  16. KAYEXALATE [Concomitant]
     Dosage: 08APR2010
     Dates: start: 20100409, end: 20100409
  17. NOVOMIX [Concomitant]
     Dates: start: 20100101
  18. FORLAX [Concomitant]
     Dates: start: 20100411, end: 20100417
  19. NEXIUM [Concomitant]
  20. ISOPTIN SR [Concomitant]
  21. PERINDOPRIL [Suspect]
     Indication: HYPERTENSION
     Dosage: INTERR ON 08APR2010
     Dates: start: 20090101

REACTIONS (4)
  - ALANINE AMINOTRANSFERASE INCREASED [None]
  - BACK PAIN [None]
  - CYTOLYTIC HEPATITIS [None]
  - ASPARTATE AMINOTRANSFERASE INCREASED [None]
